FAERS Safety Report 5011189-8 (Version None)
Quarter: 2006Q2

REPORT INFORMATION
  Report Type: 
  Country: None (occurrence: None)
  Receive Date: 20060404
  Receipt Date: 20060113
  Transmission Date: 20061013
  Serious: No
  Sender: FDA-Public Use
  Company Number: US200601002280

PATIENT
  Age: 44 Year
  Sex: Female

DRUGS (3)
  1. CYMBALTA [Suspect]
     Dosage: 20 MG, DAILY (1/D), ORAL
     Route: 048
     Dates: start: 20050101
  2. LEVOXYL [Concomitant]
  3. HYCOTUSS (GUAIFENESIN, HYDROCODONE BITARTRATE) [Concomitant]

REACTIONS (4)
  - BRONCHITIS [None]
  - HYPOAESTHESIA [None]
  - NASOPHARYNGITIS [None]
  - PARAESTHESIA [None]
